FAERS Safety Report 15321011 (Version 2)
Quarter: 2020Q4

REPORT INFORMATION
  Report Type: Spontaneous
  Country: US (occurrence: US)
  Receive Date: 20180827
  Receipt Date: 20201203
  Transmission Date: 20210113
  Serious: No
  Sender: FDA-Public Use
  Company Number: US-SA-2018SA112297

PATIENT

DRUGS (1)
  1. DUPIXENT [Suspect]
     Active Substance: DUPILUMAB
     Indication: DERMATITIS ATOPIC
     Dosage: 300 MG,QOW
     Route: 058
     Dates: start: 20180308

REACTIONS (5)
  - Drug ineffective [Unknown]
  - Skin burning sensation [Unknown]
  - Blood oestrogen increased [Unknown]
  - Alopecia [Unknown]
  - Pain of skin [Unknown]

NARRATIVE: CASE EVENT DATE: 20201109
